FAERS Safety Report 18604256 (Version 7)
Quarter: 2022Q1

REPORT INFORMATION
  Report Type: Spontaneous
  Country: US (occurrence: US)
  Receive Date: 20201211
  Receipt Date: 20220119
  Transmission Date: 20220423
  Serious: Yes (Hospitalization, Other)
  Sender: FDA-Public Use
  Company Number: US-GLAXOSMITHKLINE-US2020AMR240724

PATIENT
  Age: 78 Year

DRUGS (6)
  1. ZEJULA [Suspect]
     Active Substance: NIRAPARIB
     Indication: Ovarian cancer
     Dosage: 200 MG, QD
     Route: 048
     Dates: start: 20201027
  2. ZEJULA [Suspect]
     Active Substance: NIRAPARIB
     Dosage: 200 MG, QD
  3. ZEJULA [Suspect]
     Active Substance: NIRAPARIB
     Dosage: 200 MG, QD
  4. ZEJULA [Suspect]
     Active Substance: NIRAPARIB
     Dosage: 200 MG, QD
  5. ZEJULA [Suspect]
     Active Substance: NIRAPARIB
     Dosage: 200 MG, QD
  6. ZEJULA [Suspect]
     Active Substance: NIRAPARIB
     Dosage: 200 MG, QD

REACTIONS (14)
  - Squamous cell carcinoma [Recovering/Resolving]
  - Recurrent cancer [Recovering/Resolving]
  - Colonoscopy [Unknown]
  - Large intestine perforation [Unknown]
  - Discomfort [Unknown]
  - Constipation [Unknown]
  - Dry skin [Unknown]
  - Pruritus [Unknown]
  - Platelet count decreased [Recovered/Resolved]
  - Photosensitivity reaction [Unknown]
  - Erythema [Unknown]
  - Peripheral swelling [Unknown]
  - Product dose omission issue [Unknown]
  - Drug monitoring procedure not performed [Unknown]

NARRATIVE: CASE EVENT DATE: 20210301
